FAERS Safety Report 12610610 (Version 2)
Quarter: 2016Q3

REPORT INFORMATION
  Report Type: Spontaneous
  Country: US (occurrence: US)
  Receive Date: 20160801
  Receipt Date: 20160901
  Transmission Date: 20161109
  Serious: No
  Sender: FDA-Public Use
  Company Number: US-ELI_LILLY_AND_COMPANY-US201607008912

PATIENT
  Age: 83 Year
  Sex: Female

DRUGS (10)
  1. ASMANEX [Concomitant]
     Active Substance: MOMETASONE FUROATE
  2. LOSARTAN. [Concomitant]
     Active Substance: LOSARTAN
  3. METOPROLOL SUCCINATE. [Concomitant]
     Active Substance: METOPROLOL SUCCINATE
  4. FUROSEMIDE. [Concomitant]
     Active Substance: FUROSEMIDE
  5. SIMVASTATIN. [Concomitant]
     Active Substance: SIMVASTATIN
  6. XANAX [Concomitant]
     Active Substance: ALPRAZOLAM
  7. TRAMADOL. [Concomitant]
     Active Substance: TRAMADOL
  8. SPIRONOLACTONE. [Concomitant]
     Active Substance: SPIRONOLACTONE
  9. ADCIRCA [Suspect]
     Active Substance: TADALAFIL
     Indication: PRODUCT USED FOR UNKNOWN INDICATION
     Dosage: UNK, UNKNOWN
     Route: 048
  10. AMBRISENTAN [Suspect]
     Active Substance: AMBRISENTAN
     Indication: PULMONARY HYPERTENSION
     Dosage: 5 MG, QD
     Route: 048
     Dates: start: 20160621, end: 20160630

REACTIONS (3)
  - Dyspnoea [Unknown]
  - Fluid retention [Unknown]
  - Vomiting [Unknown]

NARRATIVE: CASE EVENT DATE: 20160630
